FAERS Safety Report 20596630 (Version 7)
Quarter: 2023Q1

REPORT INFORMATION
  Report Type: Report from Study
  Country: US (occurrence: US)
  Receive Date: 20220315
  Receipt Date: 20230131
  Transmission Date: 20230418
  Serious: Yes (Other)
  Sender: FDA-Public Use
  Company Number: US-TAKEDA-2022TUS017180

PATIENT
  Sex: Female
  Weight: 86 kg

DRUGS (2)
  1. PONATINIB [Suspect]
     Active Substance: PONATINIB
     Indication: Acute lymphocytic leukaemia
     Dosage: 30 MILLIGRAM, QD
     Route: 065
     Dates: start: 20220222
  2. PONATINIB [Suspect]
     Active Substance: PONATINIB
     Dosage: 15 MILLIGRAM, QD
     Route: 048
     Dates: start: 20220223

REACTIONS (9)
  - Acute lymphocytic leukaemia recurrent [Unknown]
  - Deafness [Unknown]
  - Skin laceration [Unknown]
  - Rash papular [Unknown]
  - White blood cell count increased [Unknown]
  - Illness [Unknown]
  - Anxiety [Unknown]
  - Erythema [Recovering/Resolving]
  - Rash [Unknown]
